FAERS Safety Report 23546970 (Version 1)
Quarter: 2024Q1

REPORT INFORMATION
  Report Type: Spontaneous
  Country: JP (occurrence: JP)
  Receive Date: 20240221
  Receipt Date: 20240221
  Transmission Date: 20240410
  Serious: Yes (Other)
  Sender: FDA-Public Use
  Company Number: JP-BRISTOL-MYERS SQUIBB COMPANY-2024-025674

PATIENT
  Age: 70 Year
  Sex: Male

DRUGS (2)
  1. TRIAMCINOLONE ACETONIDE [Suspect]
     Active Substance: TRIAMCINOLONE ACETONIDE
     Indication: Detachment of retinal pigment epithelium
  2. BROLUCIZUMAB [Suspect]
     Active Substance: BROLUCIZUMAB
     Indication: Detachment of retinal pigment epithelium

REACTIONS (2)
  - Dry age-related macular degeneration [Unknown]
  - Visual acuity reduced [Not Recovered/Not Resolved]
